FAERS Safety Report 6669205-3 (Version None)
Quarter: 2010Q2

REPORT INFORMATION
  Report Type: 
  Country: None (occurrence: None)
  Receive Date: 20100406
  Receipt Date: 20100404
  Transmission Date: 20101027
  Serious: Yes (Death)
  Sender: FDA-Public Use
  Company Number: EG-WYE-H14409010

PATIENT
  Age: 71 Year
  Sex: Male

DRUGS (1)
  1. TEMSIROLIMUS [Suspect]
     Indication: RENAL CELL CARCINOMA
     Route: 042
     Dates: start: 20090401, end: 20091101

REACTIONS (3)
  - ANAEMIA [None]
  - MUCOSAL INFLAMMATION [None]
  - STOMATITIS [None]
